FAERS Safety Report 20771557 (Version 1)
Quarter: 2022Q2

REPORT INFORMATION
  Report Type: Other
  Country: None (occurrence: US)
  Receive Date: 20220430
  Receipt Date: 20220430
  Transmission Date: 20220721
  Serious: Yes (Hospitalization, Other)
  Sender: FDA-Public Use
  Company Number: US-Innogenix, LLC-2128346

PATIENT
  Age: 69 Year
  Sex: Male

DRUGS (2)
  1. HALOPERIDOL [Suspect]
     Active Substance: HALOPERIDOL
     Indication: Agitation
     Route: 030
  2. LEVOFLOXACIN [Suspect]
     Active Substance: LEVOFLOXACIN
     Route: 065

REACTIONS (1)
  - Hepatic encephalopathy [Recovering/Resolving]
